FAERS Safety Report 13277351 (Version 1)
Quarter: 2017Q1

REPORT INFORMATION
  Report Type: Spontaneous
  Country: FR (occurrence: FR)
  Receive Date: 20170228
  Receipt Date: 20170228
  Transmission Date: 20170428
  Serious: Yes (Life-Threatening, Other)
  Sender: FDA-Public Use
  Company Number: FR-PFIZER INC-2017080187

PATIENT
  Age: 50 Year
  Sex: Female

DRUGS (13)
  1. SOLU-MEDROL [Suspect]
     Active Substance: METHYLPREDNISOLONE SODIUM SUCCINATE
     Indication: CHEMOTHERAPY TOXICITY ATTENUATION
     Dosage: 120 MG, CYCLIC (IN ONE CYCLE)
     Route: 042
     Dates: start: 20160916
  2. EMEND [Suspect]
     Active Substance: APREPITANT
     Indication: CHEMOTHERAPY TOXICITY ATTENUATION
     Dosage: 125 MG, CYCLIC (ONCE IN ONE CYCLE)
     Route: 048
     Dates: start: 20160916
  3. XANAX [Suspect]
     Active Substance: ALPRAZOLAM
     Indication: CHEMOTHERAPY TOXICITY ATTENUATION
     Dosage: 0.25 MG, CYCLIC (IN ONE CYCLE)
     Route: 048
     Dates: start: 20160916
  4. XANAX [Suspect]
     Active Substance: ALPRAZOLAM
     Dosage: 0.25 MG, CYCLIC  (H0 + 25 MINUTES)
     Route: 048
     Dates: start: 20161014
  5. ALIMTA [Suspect]
     Active Substance: PEMETREXED DISODIUM
     Dosage: 650 MG, CYCLIC (H0 DURING 10 MINUTES)
     Route: 042
     Dates: start: 20161014
  6. CARBOPLATINE HOSPIRA [Suspect]
     Active Substance: CARBOPLATIN
     Dosage: 400 MG, CYCLIC (H0 + 1 HOUR)
     Route: 042
     Dates: start: 20161014
  7. ALIMTA [Suspect]
     Active Substance: PEMETREXED DISODIUM
     Indication: BRONCHIAL CARCINOMA
     Dosage: 650 MG, CYCLIC (ONCE IN ONE CYCLE)
     Route: 042
     Dates: start: 20160916
  8. ZOPHREN /00955301/ [Suspect]
     Active Substance: ONDANSETRON
     Indication: CHEMOTHERAPY TOXICITY ATTENUATION
     Dosage: 8 MG, CYCLIC (ONCE IN ONE CYCLE)
     Route: 042
     Dates: start: 20160916
  9. CARBOPLATINE HOSPIRA [Suspect]
     Active Substance: CARBOPLATIN
     Indication: LUNG ADENOCARCINOMA
     Dosage: 400 MG, CYCLIC (ONCE IN ONE CYCLE)
     Route: 042
     Dates: start: 20160916
  10. SOLU-MEDROL [Suspect]
     Active Substance: METHYLPREDNISOLONE SODIUM SUCCINATE
     Dosage: 120 MG, CYCLIC (H0 + 40 MINUTES)
     Route: 042
     Dates: start: 20161014
  11. EMEND [Suspect]
     Active Substance: APREPITANT
     Dosage: 125 MG, CYCLIC (H0 + 25 MINUTES)
     Route: 048
     Dates: start: 20161014
  12. AVASTIN [Concomitant]
     Active Substance: BEVACIZUMAB
     Indication: BRONCHIAL CARCINOMA
     Dosage: UNK UNK, CYCLIC (1ST CYCLE)
     Dates: start: 20160916
  13. ZOPHREN /00955301/ [Suspect]
     Active Substance: ONDANSETRON
     Dosage: 8 MG, CYCLIC (H0 + 25 MINUTES)
     Route: 042
     Dates: start: 20161014

REACTIONS (9)
  - Hyperhidrosis [Recovered/Resolved]
  - Erythema [Recovered/Resolved]
  - Generalised erythema [Recovered/Resolved]
  - Hypersensitivity [Recovered/Resolved]
  - Paraesthesia [Recovered/Resolved]
  - Oral discomfort [Recovered/Resolved]
  - Dyspnoea [Recovered/Resolved]
  - Malaise [Recovered/Resolved]
  - Tremor [Recovered/Resolved]

NARRATIVE: CASE EVENT DATE: 20161014
